FAERS Safety Report 9386284 (Version 3)
Quarter: 2013Q3

REPORT INFORMATION
  Report Type: Spontaneous
  Country: US (occurrence: US)
  Receive Date: 20130708
  Receipt Date: 20130729
  Transmission Date: 20140515
  Serious: Yes (Other)
  Sender: FDA-Public Use
  Company Number: US-JNJFOC-20130617164

PATIENT
  Age: 27 Year
  Sex: Male
  Weight: 86.18 kg

DRUGS (2)
  1. ROGAINE FOR MEN REGULAR STRENGTH [Suspect]
     Route: 061
  2. ROGAINE FOR MEN REGULAR STRENGTH [Suspect]
     Indication: ALOPECIA
     Dosage: 1/2 CAPFUL, AS DIRECTED
     Route: 061
     Dates: start: 2010, end: 2010

REACTIONS (10)
  - Suicidal ideation [Unknown]
  - Left atrial dilatation [Unknown]
  - Coagulopathy [Unknown]
  - Frustration [Unknown]
  - Hair disorder [Unknown]
  - Self esteem decreased [Unknown]
  - Skin wrinkling [Not Recovered/Not Resolved]
  - Dark circles under eyes [Not Recovered/Not Resolved]
  - Drug administered at inappropriate site [Unknown]
  - Drug ineffective [Unknown]
